FAERS Safety Report 4562897-4 (Version None)
Quarter: 2005Q1

REPORT INFORMATION
  Report Type: 
  Country: None (occurrence: None)
  Receive Date: 20050127
  Receipt Date: 20050118
  Transmission Date: 20050727
  Serious: Yes (Hospitalization, Other)
  Sender: FDA-Public Use
  Company Number: US-BRISTOL-MYERS SQUIBB COMPANY-12835856

PATIENT
  Age: 55 Year
  Sex: Male

DRUGS (10)
  1. SERZONE [Suspect]
     Indication: DEPRESSION
     Dates: start: 19990126, end: 20020102
  2. TETRACYCLINE [Concomitant]
  3. RANITIDINE [Concomitant]
  4. LISINOPRIL [Concomitant]
  5. KETOCONAZOLE [Concomitant]
  6. VERAPAMIL HCL [Concomitant]
  7. COLCHICINE [Concomitant]
  8. INDOMETHACIN [Concomitant]
  9. SIMVASTATIN TAB [Concomitant]
  10. RABEPRAZOLE SODIUM [Concomitant]

REACTIONS (6)
  - GRANULOMA [None]
  - LIVER FUNCTION TEST ABNORMAL [None]
  - SPLENOMEGALY [None]
  - VENTRICULAR TACHYCARDIA [None]
  - VOMITING [None]
  - WEIGHT DECREASED [None]
